FAERS Safety Report 8255255-2 (Version None)
Quarter: 2012Q2

REPORT INFORMATION
  Report Type: 
  Country: None (occurrence: None)
  Receive Date: 20120403
  Receipt Date: 20120323
  Transmission Date: 20120825
  Serious: Yes (Hospitalization)
  Sender: FDA-Public Use
  Company Number: US-CELGENEUS-163-21880-12020304

PATIENT
  Sex: Female
  Weight: 106.24 kg

DRUGS (9)
  1. ISORDIL [Concomitant]
     Route: 065
  2. HYDROCHLOROTHIAZIDE [Concomitant]
     Route: 065
  3. LORTAB [Concomitant]
     Route: 065
  4. AMLODIPINE [Concomitant]
     Route: 065
  5. K+ [Concomitant]
     Route: 065
  6. CILOSTAZOL [Concomitant]
     Route: 065
  7. REVLIMID [Suspect]
     Dosage: 10 MILLIGRAM
     Route: 048
     Dates: start: 20111111
  8. CA + D [Concomitant]
     Route: 065
  9. FLEXERIL [Concomitant]
     Route: 065

REACTIONS (3)
  - CONSTIPATION [None]
  - DEHYDRATION [None]
  - FAECALOMA [None]
